FAERS Safety Report 15215461 (Version 1)
Quarter: 2018Q3

REPORT INFORMATION
  Report Type: Spontaneous
  Country: CO (occurrence: CO)
  Receive Date: 20180730
  Receipt Date: 20180730
  Transmission Date: 20181010
  Serious: Yes (Hospitalization)
  Sender: FDA-Public Use
  Company Number: CO-JNJFOC-20180733966

PATIENT
  Age: 27 Year
  Sex: Female
  Weight: 59 kg

DRUGS (1)
  1. REMICADE [Suspect]
     Active Substance: INFLIXIMAB
     Indication: CROHN^S DISEASE
     Route: 042
     Dates: start: 201605

REACTIONS (4)
  - Crohn^s disease [Unknown]
  - Gastrointestinal obstruction [Unknown]
  - Drug ineffective [Unknown]
  - Peritonitis [Unknown]

NARRATIVE: CASE EVENT DATE: 201801
